FAERS Safety Report 11204787 (Version 1)
Quarter: 2015Q2

REPORT INFORMATION
  Report Type: Spontaneous
  Country: US (occurrence: None)
  Receive Date: 20150617
  Receipt Date: 20150617
  Transmission Date: 20150821
  Serious: Yes (Hospitalization, Other)
  Sender: FDA-Public Use
  Company Number: SP09628

PATIENT
  Age: 53 Year
  Sex: Female
  Weight: 75.75 kg

DRUGS (15)
  1. XIFAXAN [Suspect]
     Active Substance: RIFAXIMIN
     Indication: HEPATIC ENCEPHALOPATHY
     Dosage: 550 MG, 2 IN 1 D
     Route: 048
     Dates: start: 2011
  2. RIFAMPIN. [Concomitant]
     Active Substance: RIFAMPIN
  3. ZOFRAN [Concomitant]
     Active Substance: ONDANSETRON HYDROCHLORIDE
  4. ROPINIROLE. [Concomitant]
     Active Substance: ROPINIROLE
  5. IBANDRONATE [Concomitant]
     Active Substance: IBANDRONATE SODIUM
  6. HYDROXYZINE HCL [Concomitant]
     Active Substance: HYDROXYZINE HYDROCHLORIDE
  7. AZATHIOPRINE. [Concomitant]
     Active Substance: AZATHIOPRINE
  8. NEXIUM [Concomitant]
     Active Substance: ESOMEPRAZOLE MAGNESIUM
  9. ZYRTEC [Concomitant]
     Active Substance: CETIRIZINE HYDROCHLORIDE
  10. LACTULOSE. [Concomitant]
     Active Substance: LACTULOSE
  11. VITAMIN D [Concomitant]
     Active Substance: CHOLECALCIFEROL
  12. IRON [Concomitant]
     Active Substance: IRON
  13. ZINC SULFATE [Concomitant]
     Active Substance: ZINC SULFATE\ZINC SULFATE ANHYDROUS
  14. SERTRALINE HCL [Concomitant]
     Active Substance: SERTRALINE HYDROCHLORIDE
  15. LIALDA [Concomitant]
     Active Substance: MESALAMINE

REACTIONS (7)
  - Colitis ulcerative [None]
  - Clostridium difficile colitis [None]
  - Pleural effusion [None]
  - Oedema peripheral [None]
  - Heart rate increased [None]
  - Dyspnoea [None]
  - Localised intraabdominal fluid collection [None]

NARRATIVE: CASE EVENT DATE: 201409
